FAERS Safety Report 9309229 (Version 1)
Quarter: 2013Q2

REPORT INFORMATION
  Report Type: Spontaneous
  Country: US (occurrence: US)
  Receive Date: 20130525
  Receipt Date: 20130525
  Transmission Date: 20140414
  Serious: No
  Sender: FDA-Public Use
  Company Number: US-BRISTOL-MYERS SQUIBB COMPANY-18578385

PATIENT
  Age: 63 Year
  Sex: Female

DRUGS (2)
  1. BYETTA PEN DISPOSABLE [Suspect]
     Indication: TYPE 2 DIABETES MELLITUS
     Route: 058
     Dates: end: 2012
  2. EXENATIDE UNK STRENGTH PEN, DISPOSABLE DEVICE [Suspect]

REACTIONS (2)
  - Blood glucose increased [Recovering/Resolving]
  - Blood glucose abnormal [Recovering/Resolving]
